FAERS Safety Report 9984201 (Version 1)
Quarter: 2014Q1

REPORT INFORMATION
  Report Type: Report from Study
  Country: US (occurrence: US)
  Receive Date: 20140307
  Receipt Date: 20140307
  Transmission Date: 20141002
  Serious: No
  Sender: FDA-Public Use
  Company Number: US-ABBVIE-13P-163-1182671-00

PATIENT
  Age: 70 Year
  Sex: Female

DRUGS (5)
  1. HUMIRA [Suspect]
     Indication: CROHN^S DISEASE
     Dosage: 160 MG LOADING DOSE
     Dates: start: 20131213, end: 20131213
  2. LISINOPRIL [Concomitant]
     Indication: HYPERTENSION
  3. DULERA [Concomitant]
     Indication: HYPERSENSITIVITY
     Route: 055
  4. SINGULAIR [Concomitant]
     Indication: HYPERSENSITIVITY
  5. PREDNISONE [Concomitant]
     Indication: CROHN^S DISEASE
     Dosage: TAPER

REACTIONS (2)
  - Injection site pain [Not Recovered/Not Resolved]
  - Cellulitis [Not Recovered/Not Resolved]
